FAERS Safety Report 23872017 (Version 2)
Quarter: 2024Q4

REPORT INFORMATION
  Report Type: Spontaneous
  Country: JP (occurrence: JP)
  Receive Date: 20240520
  Receipt Date: 20241213
  Transmission Date: 20250115
  Serious: Yes (Death, Life-Threatening, Hospitalization, Other)
  Sender: ASTELLAS
  Company Number: JP-ASTELLAS-2024JP003149

PATIENT
  Age: 77 Year
  Sex: Male
  Weight: 45 kg

DRUGS (15)
  1. PADCEV [Suspect]
     Active Substance: ENFORTUMAB VEDOTIN\ENFORTUMAB VEDOTIN-EJFV
     Indication: Malignant neoplasm of renal pelvis
     Dosage: 60 MG/TIME X 3
     Route: 042
     Dates: start: 20240116
  2. PADCEV [Suspect]
     Active Substance: ENFORTUMAB VEDOTIN\ENFORTUMAB VEDOTIN-EJFV
     Dosage: 57 MG/TIME X 3
     Route: 042
     Dates: start: 20240409
  3. Calonal Tablets 500 mg [Concomitant]
     Indication: Product used for unknown indication
     Route: 065
  4. Oxycodone 5 mg NX [Concomitant]
     Indication: Product used for unknown indication
     Route: 065
  5. Oxinorm Powder 5 mg [Concomitant]
     Indication: Product used for unknown indication
     Route: 065
  6. MAGNESIUM OXIDE [Concomitant]
     Active Substance: MAGNESIUM OXIDE
     Indication: Product used for unknown indication
     Route: 065
  7. PREDNISOLONE [Concomitant]
     Active Substance: PREDNISOLONE
     Indication: Product used for unknown indication
     Route: 065
  8. Carbocisteine 500 mg [Concomitant]
     Indication: Product used for unknown indication
     Route: 065
  9. ASPIRIN\LANSOPRAZOLE [Concomitant]
     Active Substance: ASPIRIN\LANSOPRAZOLE
     Indication: Product used for unknown indication
     Route: 065
  10. Rosuvastatin OD Tablets 2.5 mg [Concomitant]
     Indication: Product used for unknown indication
     Route: 065
  11. Silodosin Tablets 4 mg [Concomitant]
     Indication: Product used for unknown indication
     Route: 065
  12. Symproic Tablets [Concomitant]
     Indication: Product used for unknown indication
     Route: 065
  13. GEMCITABINE [Concomitant]
     Active Substance: GEMCITABINE
     Indication: Malignant neoplasm of renal pelvis
     Route: 065
  14. CARBOPLATIN [Concomitant]
     Active Substance: CARBOPLATIN
     Indication: Malignant neoplasm of renal pelvis
     Route: 065
  15. PEMBROLIZUMAB [Concomitant]
     Active Substance: PEMBROLIZUMAB
     Indication: Malignant neoplasm of renal pelvis
     Route: 065

REACTIONS (2)
  - Febrile neutropenia [Fatal]
  - Toxic epidermal necrolysis [Fatal]

NARRATIVE: CASE EVENT DATE: 20240428
